FAERS Safety Report 9174812 (Version 3)
Quarter: 2013Q2

REPORT INFORMATION
  Report Type: Spontaneous
  Country: JP (occurrence: None)
  Receive Date: 20130318
  Receipt Date: 20130614
  Transmission Date: 20140414
  Serious: Yes (Hospitalization)
  Sender: FDA-Public Use
  Company Number: 2013-000687

PATIENT
  Age: 81 Year
  Sex: Female

DRUGS (5)
  1. ACTONEL [Suspect]
     Indication: OSTEOPOROSIS
     Route: 048
  2. CADUET (AMLODIPINE BESILATE, ATORVASTATIN CALCIUM) [Concomitant]
  3. REBAMIPIDE (REBAMIPIDE) (TABLET) [Concomitant]
  4. ISALON (ALDIOXA), 5 % [Concomitant]
  5. PLATIBIT (ALFACALICIDOL) [Concomitant]

REACTIONS (4)
  - Fall [None]
  - Atypical femur fracture [None]
  - Bone pain [None]
  - Procedural pain [None]
